FAERS Safety Report 23411885 (Version 4)
Quarter: 2025Q2

REPORT INFORMATION
  Report Type: Spontaneous
  Country: CA (occurrence: CA)
  Receive Date: 20240117
  Receipt Date: 20250522
  Transmission Date: 20250717
  Serious: Yes (Hospitalization, Other)
  Sender: PFIZER
  Company Number: CA-PFIZER INC-PV202400006467

PATIENT
  Age: 74 Year
  Sex: Male

DRUGS (4)
  1. INLYTA [Suspect]
     Active Substance: AXITINIB
     Indication: Metastatic renal cell carcinoma
     Dosage: 5 MG, 2X/DAY, ONE DOSE TAKEN TWICE DAILY
     Dates: start: 20231208
  2. INLYTA [Suspect]
     Active Substance: AXITINIB
     Dates: start: 20231219
  3. INLYTA [Suspect]
     Active Substance: AXITINIB
     Dosage: 2.5 MG, 2X/DAY
     Route: 048
     Dates: start: 202409
  4. INLYTA [Suspect]
     Active Substance: AXITINIB
     Dosage: 2.5 MG, 2X/DAY
     Route: 048
     Dates: start: 20250506

REACTIONS (4)
  - Atrial fibrillation [Unknown]
  - Dizziness [Unknown]
  - Chest pain [Unknown]
  - Off label use [Unknown]

NARRATIVE: CASE EVENT DATE: 20240101
